FAERS Safety Report 7971699-8 (Version None)
Quarter: 2011Q4

REPORT INFORMATION
  Report Type: 
  Country: None (occurrence: None)
  Receive Date: 20111212
  Receipt Date: 20111129
  Transmission Date: 20120403
  Serious: Yes (Death, Hospitalization, Other)
  Sender: FDA-Public Use
  Company Number: US-ELI_LILLY_AND_COMPANY-US201101001805

PATIENT
  Sex: Female

DRUGS (14)
  1. XALATAN [Concomitant]
     Dosage: UNK, QD
  2. BETAGAN [Concomitant]
     Dosage: UNK, BID
  3. FOLIC ACID [Concomitant]
     Dosage: UNK, QD
  4. MULTIVITAMIN [Concomitant]
     Dosage: UNK, QD
  5. ALPHAGAN [Concomitant]
     Dosage: UNK, BID
  6. KAYEXALATE [Concomitant]
     Dosage: 60 ML, 2/W
  7. SODIUM BICARBONATE [Concomitant]
     Dosage: 650 MG, TID
  8. CITRUCEL [Concomitant]
     Dosage: UNK, QID
  9. FORTEO [Suspect]
     Indication: OSTEOPOROSIS
     Dosage: 20 UG, DAILY (1/D)
     Route: 065
     Dates: start: 20101101
  10. TYLENOL                                 /SCH/ [Concomitant]
     Dosage: UNK, PRN
  11. CLARITIN [Concomitant]
     Dosage: UNK, QD
  12. FORTEO [Suspect]
     Dosage: 20 UG, QD
     Dates: end: 20111117
  13. CITRACAL [Concomitant]
     Dosage: UNK, BID
  14. SLOW-FE [Concomitant]
     Dosage: UNK, QD

REACTIONS (14)
  - ASTHENIA [None]
  - PNEUMONIA [None]
  - DEATH [None]
  - GRUNTING [None]
  - CONFUSIONAL STATE [None]
  - DEMENTIA [None]
  - VISUAL IMPAIRMENT [None]
  - ABDOMINAL PAIN UPPER [None]
  - CHEST PAIN [None]
  - PERSONALITY CHANGE [None]
  - NAUSEA [None]
  - PAIN IN EXTREMITY [None]
  - MALAISE [None]
  - CEREBROVASCULAR ACCIDENT [None]
